FAERS Safety Report 9363515 (Version 1)
Quarter: 2013Q2

REPORT INFORMATION
  Report Type: Report from Study
  Country: CA (occurrence: CA)
  Receive Date: 20130624
  Receipt Date: 20130624
  Transmission Date: 20140414
  Serious: Yes (Hospitalization, Other)
  Sender: FDA-Public Use
  Company Number: CA-JNJFOC-20130605005

PATIENT
  Sex: Female
  Weight: 109 kg

DRUGS (2)
  1. REMICADE [Suspect]
     Indication: RHEUMATOID ARTHRITIS
     Route: 042
     Dates: start: 20071018, end: 20121119
  2. PREDNISONE [Concomitant]
     Route: 065

REACTIONS (4)
  - Pneumonia [Unknown]
  - Gastrointestinal disorder [Recovering/Resolving]
  - Sinusitis [Unknown]
  - Streptococcal infection [Unknown]
